FAERS Safety Report 4886732-X (Version None)
Quarter: 2006Q1

REPORT INFORMATION
  Report Type: 
  Country: None (occurrence: None)
  Receive Date: 20060119
  Receipt Date: 20051222
  Transmission Date: 20060701
  Serious: Yes (Life-Threatening, Hospitalization)
  Sender: FDA-Public Use
  Company Number: 221082

PATIENT
  Age: 62 Year
  Sex: Male
  Weight: 75.2 kg

DRUGS (8)
  1. AVASTIN [Suspect]
     Indication: COLON CANCER
     Dosage: 375 MG, Q2W, INTRAVENOUS
     Route: 042
     Dates: start: 20050627, end: 20051003
  2. OXALIPLATIN (OXALIPLATIN) [Suspect]
     Indication: COLON CANCER
     Dosage: 150 MG, Q2W, INTRAVENOUS
     Route: 042
     Dates: start: 20050627
  3. LEUCOVORIN CALCIUM [Suspect]
     Indication: COLON CANCER
     Dosage: 370 MG, Q2W, INTRAVENOUS
     Route: 042
     Dates: start: 20050627
  4. FLUOROURACIL [Suspect]
     Indication: COLON CANCER
     Dosage: SEE IMAGE
     Route: 042
     Dates: start: 20050627
  5. BACLOFEN [Concomitant]
  6. CYCLIZINE (CYCLIZINE) [Concomitant]
  7. ONDANSETRON [Concomitant]
  8. NOZINAN (METHOTRIMEPRAZINE) [Concomitant]

REACTIONS (7)
  - DEHYDRATION [None]
  - FOOD INTOLERANCE [None]
  - HAEMATEMESIS [None]
  - HAEMOGLOBIN DECREASED [None]
  - HICCUPS [None]
  - OESOPHAGITIS [None]
  - POST PROCEDURAL VOMITING [None]
